FAERS Safety Report 9793154 (Version 1)
Quarter: 2013Q4

REPORT INFORMATION
  Report Type: Spontaneous
  Country: JP (occurrence: None)
  Receive Date: 20131230
  Receipt Date: 20131230
  Transmission Date: 20140711
  Serious: Yes (Hospitalization)
  Sender: FDA-Public Use
  Company Number: FK201305561

PATIENT
  Age: 66 Year
  Sex: Male

DRUGS (7)
  1. IRINOTECAN (IRINOTECAN) [Suspect]
     Indication: COLORECTAL CANCER METASTATIC
  2. OXALIPLATIN (OXALIPLATIN) [Suspect]
     Indication: COLORECTAL CANCER METASTATIC
  3. FLUOROURACIL (FLUOROURACIL) [Suspect]
     Indication: COLORECTAL CANCER METASTATIC
  4. LEUCOVORIN CALCIUM (LEUCOVORIN CALCIUM) [Suspect]
     Indication: COLORECTAL CANCER METASTATIC
  5. PANITUMUMAB [Suspect]
     Indication: COLORECTAL CANCER METASTATIC
  6. S-1 (GIMERACIL W/OTERACIL POTASSIUM/TEGAFUR) [Concomitant]
  7. BEVACIZUMAB (BEVACIZUMAB) [Concomitant]

REACTIONS (3)
  - Paronychia [None]
  - Neurotoxicity [None]
  - Rash [None]
